FAERS Safety Report 4320774-8 (Version None)
Quarter: 2004Q1

REPORT INFORMATION
  Report Type: 
  Country: None (occurrence: None)
  Receive Date: 20040315
  Receipt Date: 20040208
  Transmission Date: 20041129
  Serious: No
  Sender: FDA-Public Use
  Company Number: 2004198674PR

PATIENT

DRUGS (1)
  1. BEXTRA [Suspect]
     Dosage: 20 MG

REACTIONS (2)
  - OEDEMA [None]
  - SODIUM RETENTION [None]
